FAERS Safety Report 6097259-4 (Version None)
Quarter: 2009Q1

REPORT INFORMATION
  Report Type: 
  Country: None (occurrence: None)
  Receive Date: 20090227
  Receipt Date: 20090219
  Transmission Date: 20090719
  Serious: Yes (Hospitalization, Other)
  Sender: FDA-Public Use
  Company Number: CZ-ABBOTT-05P-217-0291312-00

PATIENT
  Sex: Male
  Weight: 90 kg

DRUGS (11)
  1. HUMIRA [Suspect]
     Indication: RHEUMATOID ARTHRITIS
     Dosage: NOT REPORTED
     Route: 058
     Dates: start: 20030930, end: 20041109
  2. HUMIRA [Suspect]
     Dosage: NOT REPORTED
     Route: 058
     Dates: start: 20041228
  3. PREDNISONE [Concomitant]
     Indication: DRUG USE FOR UNKNOWN INDICATION
     Dosage: NOT REPORTED
     Route: 048
     Dates: start: 19980101
  4. SURGAM [Concomitant]
     Indication: DRUG USE FOR UNKNOWN INDICATION
     Dosage: NOT REPORTED
     Route: 048
     Dates: start: 20020101
  5. AKTIFERIN COMPOSITUM CAPSULES [Concomitant]
     Indication: DRUG USE FOR UNKNOWN INDICATION
     Dosage: NOT REPORTED
  6. WARFARIN [Concomitant]
     Indication: DRUG USE FOR UNKNOWN INDICATION
  7. MINIHEPARINIZATION [Concomitant]
     Indication: THROMBOSIS PROPHYLAXIS
     Dosage: NOT REPORTED, NOT REPORTED, NOT REPORTED
  8. ANTIBIOTIC [Concomitant]
     Indication: PROPHYLAXIS
     Dosage: NOT REPORTED, NOT REPORTED, NOT REPORTED
  9. INFUSION THERAPY [Concomitant]
     Indication: DRUG USE FOR UNKNOWN INDICATION
     Dosage: NOT REPORTED, NOT REPORTED, INFUSION
  10. ANALGESIC THERAPY [Concomitant]
     Indication: DRUG USE FOR UNKNOWN INDICATION
     Dosage: NOT REPORTED, NOT REPORTED
     Route: 042
  11. ANALGESIC THERAPY [Concomitant]
     Dosage: NOT REPORTED, NOT REPORTED
     Route: 048

REACTIONS (2)
  - HAEMOGLOBIN ABNORMAL [None]
  - HIP ARTHROPLASTY [None]
